FAERS Safety Report 8231423-0 (Version None)
Quarter: 2012Q1

REPORT INFORMATION
  Report Type: 
  Country: None (occurrence: None)
  Receive Date: 20120323
  Receipt Date: 20120319
  Transmission Date: 20120608
  Serious: No
  Sender: FDA-Public Use
  Company Number: AU-VERTEX PHARMACEUTICALS INC.-000000000000000238

PATIENT
  Sex: Female
  Weight: 70 kg

DRUGS (3)
  1. PEGINTERFERON ALFA-2A [Concomitant]
     Indication: HEPATITIS C
  2. RIBAVIRIN [Concomitant]
     Indication: HEPATITIS C
  3. INCIVO (TELAPREVIR) [Suspect]
     Indication: HEPATITIS C
     Dosage: DOSAGE FORM: TABLET
     Route: 048

REACTIONS (1)
  - ANAL FISSURE [None]
